FAERS Safety Report 9912081 (Version 1)
Quarter: 2014Q1

REPORT INFORMATION
  Report Type: Spontaneous
  Country: US (occurrence: US)
  Receive Date: 20140219
  Receipt Date: 20140219
  Transmission Date: 20141002
  Serious: Yes (Hospitalization)
  Sender: FDA-Public Use
  Company Number: US-AMGEN-USASP2014011260

PATIENT
  Age: 34 Year
  Sex: Male

DRUGS (1)
  1. ENBREL [Suspect]
     Indication: SUBCORNEAL PUSTULAR DERMATOSIS
     Dosage: 50 MG, 2 TIMES/WK
     Route: 065
     Dates: start: 20100901

REACTIONS (3)
  - Cellulitis [Not Recovered/Not Resolved]
  - Local swelling [Recovered/Resolved]
  - Unevaluable event [Not Recovered/Not Resolved]
